FAERS Safety Report 23569531 (Version 2)
Quarter: 2024Q1

REPORT INFORMATION
  Report Type: Report from Study
  Country: US (occurrence: US)
  Receive Date: 20240227
  Receipt Date: 20240321
  Transmission Date: 20240410
  Serious: Yes (Other)
  Sender: FDA-Public Use
  Company Number: US-ABBVIE-5615734

PATIENT
  Age: 63 Year
  Sex: Male

DRUGS (1)
  1. HUMIRA [Suspect]
     Active Substance: ADALIMUMAB
     Indication: Rheumatoid arthritis
     Dosage: FORM STRENGTH: 40 MILLIGRAM?CITRATE FREE
     Route: 058

REACTIONS (7)
  - Shoulder fracture [Recovering/Resolving]
  - Fall [Recovering/Resolving]
  - Osteoarthritis [Not Recovered/Not Resolved]
  - Arthropathy [Recovering/Resolving]
  - Spinal osteoarthritis [Not Recovered/Not Resolved]
  - Pain [Unknown]
  - Rotator cuff syndrome [Unknown]

NARRATIVE: CASE EVENT DATE: 20231101
